FAERS Safety Report 7464220-4 (Version None)
Quarter: 2011Q2

REPORT INFORMATION
  Report Type: 
  Country: None (occurrence: None)
  Receive Date: 20110506
  Receipt Date: 20110429
  Transmission Date: 20111010
  Serious: Yes (Hospitalization)
  Sender: FDA-Public Use
  Company Number: FR-GENENTECH-317240

PATIENT
  Sex: Male

DRUGS (15)
  1. RITUXAN [Suspect]
     Dosage: 640 MG, QAM
     Route: 041
     Dates: start: 20100907, end: 20100907
  2. CYCLOPHOSPHAMIDE [Suspect]
     Indication: B-CELL SMALL LYMPHOCYTIC LYMPHOMA
     Dosage: UNK
     Route: 002
     Dates: start: 20100908, end: 20100910
  3. VASTAREL [Concomitant]
     Indication: PRODUCT USED FOR UNKNOWN INDICATION
     Dosage: 35 MG, BID
  4. FLUDARA [Suspect]
     Indication: B-CELL SMALL LYMPHOCYTIC LYMPHOMA
     Dosage: UNK
     Route: 041
     Dates: start: 20100908, end: 20100910
  5. APROVEL [Concomitant]
     Indication: PRODUCT USED FOR UNKNOWN INDICATION
     Dosage: 300 MG, QAM
  6. PERMIXON [Concomitant]
     Indication: PRODUCT USED FOR UNKNOWN INDICATION
     Dosage: 160 MG, BID
  7. CYCLOPHOSPHAMIDE [Suspect]
     Dosage: 350 MG, QD
     Route: 002
     Dates: start: 20101221, end: 20101223
  8. FUROSEMIDE [Concomitant]
     Indication: PRODUCT USED FOR UNKNOWN INDICATION
     Dosage: 20 MG, QAM
  9. RITUXAN [Suspect]
     Indication: B-CELL SMALL LYMPHOCYTIC LYMPHOMA
     Dosage: 99 MG, QAM
     Route: 041
     Dates: start: 20100906, end: 20100906
  10. ZELITREX [Concomitant]
     Indication: ANTIVIRAL PROPHYLAXIS
     Dosage: 500 MG, BID
  11. SOTALOL HCL [Concomitant]
     Indication: PRODUCT USED FOR UNKNOWN INDICATION
     Dosage: 80 MG, BID
  12. RITUXAN [Suspect]
     Dosage: 990 MG, QD
     Route: 041
     Dates: start: 20101221, end: 20101221
  13. FLUDARA [Suspect]
     Dosage: 60 MG, QD
     Route: 041
     Dates: start: 20101221, end: 20101223
  14. CRESTOR [Concomitant]
     Indication: PRODUCT USED FOR UNKNOWN INDICATION
     Dosage: 5 MG, QAM
  15. BACTRIM [Concomitant]
     Indication: ANTIBIOTIC PROPHYLAXIS
     Dosage: 800 MG, UNK

REACTIONS (5)
  - PANCYTOPENIA [None]
  - NEUTROPENIA [None]
  - BACK PAIN [None]
  - BRONCHOPNEUMOPATHY [None]
  - ESCHERICHIA INFECTION [None]
